FAERS Safety Report 4707830-7 (Version None)
Quarter: 2005Q3

REPORT INFORMATION
  Report Type: 
  Country: None (occurrence: None)
  Receive Date: 20050705
  Receipt Date: 20050705
  Transmission Date: 20060218
  Serious: Yes (Other)
  Sender: FDA-Public Use
  Company Number: None

PATIENT
  Age: 51 Year
  Sex: Male
  Weight: 83.9154 kg

DRUGS (1)
  1. VISINE-A [Suspect]
     Dosage: ONCE A DAY

REACTIONS (2)
  - MYDRIASIS [None]
  - VISUAL DISTURBANCE [None]
